FAERS Safety Report 4289009-9 (Version None)
Quarter: 2004Q1

REPORT INFORMATION
  Report Type: 
  Country: None (occurrence: None)
  Receive Date: 20040203
  Receipt Date: 20030804
  Transmission Date: 20041129
  Serious: No
  Sender: FDA-Public Use
  Company Number: 03P-163-0222728-00

PATIENT
  Age: 66 Year
  Sex: Female

DRUGS (1)
  1. VICODIN [Suspect]
     Dosage: 1 TABLET, 12 IN 1 D, PER ORAL
     Route: 048

REACTIONS (6)
  - BLOOD POTASSIUM DECREASED [None]
  - GASTROINTESTINAL HAEMORRHAGE [None]
  - MALLORY-WEISS SYNDROME [None]
  - NAUSEA [None]
  - OVERDOSE [None]
  - VOMITING [None]
